FAERS Safety Report 25137108 (Version 1)
Quarter: 2025Q1

REPORT INFORMATION
  Report Type: Spontaneous
  Country: GB (occurrence: GB)
  Receive Date: 20250328
  Receipt Date: 20250328
  Transmission Date: 20250409
  Serious: Yes (Death, Hospitalization, Other)
  Sender: ABBVIE
  Company Number: GB-PHARMVIT-4556-3352-ER25-RN1391

PATIENT
  Age: 59 Year
  Sex: Female

DRUGS (1)
  1. PREDNISOLONE [Suspect]
     Active Substance: PREDNISOLONE
     Indication: Product used for unknown indication
     Route: 065

REACTIONS (7)
  - Pneumonia [Fatal]
  - Immunosuppression [Not Recovered/Not Resolved]
  - JC virus infection [Not Recovered/Not Resolved]
  - Dermatomyositis [Unknown]
  - Hemiparesis [Unknown]
  - Aphasia [Unknown]
  - Skin lesion [Recovering/Resolving]
